FAERS Safety Report 12127606 (Version 1)
Quarter: 2016Q1

REPORT INFORMATION
  Report Type: Spontaneous
  Country: US (occurrence: US)
  Receive Date: 20160229
  Receipt Date: 20160229
  Transmission Date: 20160526
  Serious: Yes (Other)
  Sender: FDA-Public Use
  Company Number: US-BAYER-2016-033172

PATIENT
  Age: 80 Year
  Sex: Female
  Weight: 38.95 kg

DRUGS (2)
  1. BAYER WOMENS [Suspect]
     Active Substance: ASPIRIN\CALCIUM CARBONATE
     Indication: ISCHAEMIC HEART DISEASE PROPHYLAXIS
     Dosage: 1 DF, QD
     Route: 048
     Dates: start: 20151218, end: 20160217
  2. BAYER ASPIRIN REGIMEN [Concomitant]
     Indication: ISCHAEMIC HEART DISEASE PROPHYLAXIS
     Dosage: 1 DF, QD
     Route: 048
     Dates: start: 20160218

REACTIONS (2)
  - Choking [Recovered/Resolved]
  - Foreign body [Recovered/Resolved]

NARRATIVE: CASE EVENT DATE: 201602
